FAERS Safety Report 6464312-2 (Version None)
Quarter: 2009Q4

REPORT INFORMATION
  Report Type: 
  Country: None (occurrence: None)
  Receive Date: 20091130
  Receipt Date: 20091130
  Transmission Date: 20100525
  Serious: Yes (Hospitalization, Other)
  Sender: FDA-Public Use
  Company Number: None

PATIENT
  Sex: Female
  Weight: 96.3894 kg

DRUGS (1)
  1. ADIPEX [Suspect]
     Indication: WEIGHT INCREASED
     Dosage: 37.5 1 TIME PO
     Route: 048
     Dates: start: 20091015, end: 20091104

REACTIONS (1)
  - DEEP VEIN THROMBOSIS [None]
